FAERS Safety Report 5113685-1 (Version None)
Quarter: 2006Q3

REPORT INFORMATION
  Report Type: 
  Country: None (occurrence: None)
  Receive Date: 20060925
  Receipt Date: 20060920
  Transmission Date: 20061208
  Serious: Yes (Hospitalization)
  Sender: FDA-Public Use
  Company Number: DE-AVENTIS-200612803DE

PATIENT
  Age: 57 Year
  Sex: Female
  Weight: 75.6 kg

DRUGS (4)
  1. DOCETAXEL [Suspect]
     Indication: BREAST CANCER
     Route: 042
     Dates: start: 20060623, end: 20060623
  2. ANEMET [Suspect]
     Indication: CHEMOTHERAPY
     Route: 048
     Dates: start: 20060623, end: 20060625
  3. DEXAMETHASONE [Suspect]
     Indication: CHEMOTHERAPY
     Route: 042
     Dates: start: 20060623, end: 20060623
  4. DEXAMETHASONE [Suspect]
     Route: 048
     Dates: start: 20060622, end: 20060624

REACTIONS (3)
  - ANAEMIA [None]
  - DIARRHOEA [None]
  - FEBRILE NEUTROPENIA [None]
